FAERS Safety Report 17407920 (Version 1)
Quarter: 2020Q1

REPORT INFORMATION
  Report Type: Spontaneous
  Country: ES (occurrence: ES)
  Receive Date: 20200212
  Receipt Date: 20200212
  Transmission Date: 20200409
  Serious: Yes (Hospitalization)
  Sender: FDA-Public Use
  Company Number: ES-MYLANLABS-2020M1015147

PATIENT
  Age: 87 Year
  Sex: Male

DRUGS (1)
  1. LEVOFLOXACIN. [Suspect]
     Active Substance: LEVOFLOXACIN
     Indication: RESPIRATORY TRACT INFECTION
     Dosage: 500 MG, QD

REACTIONS (6)
  - Pain in extremity [Recovering/Resolving]
  - Rotator cuff syndrome [Recovering/Resolving]
  - Tendon rupture [Recovering/Resolving]
  - Gait disturbance [Recovering/Resolving]
  - Oedema peripheral [Recovering/Resolving]
  - Tendonitis [Recovering/Resolving]
